FAERS Safety Report 10066233 (Version 2)
Quarter: 2014Q2

REPORT INFORMATION
  Report Type: Spontaneous
  Country: ES (occurrence: ES)
  Receive Date: 20140408
  Receipt Date: 20140411
  Transmission Date: 20141212
  Serious: Yes (Hospitalization, Other)
  Sender: FDA-Public Use
  Company Number: ES-UCBSA-116681

PATIENT
  Sex: Female

DRUGS (7)
  1. CIMZIA [Suspect]
     Route: 058
     Dates: start: 20140305, end: 201403
  2. INFLIXIMAB [Suspect]
     Dosage: PER 6 WEEKS
     Route: 042
     Dates: start: 20091216, end: 20140205
  3. PREDNISONE [Concomitant]
     Indication: ARTHROPATHY
     Route: 048
     Dates: start: 20140213, end: 20140219
  4. PREDNISONE [Concomitant]
     Indication: ARTHROPATHY
     Route: 048
     Dates: start: 20140220, end: 20140226
  5. PREDNISONE [Concomitant]
     Indication: ARTHROPATHY
     Route: 048
     Dates: start: 20140227, end: 20140305
  6. PREDNISONE [Concomitant]
     Indication: ARTHROPATHY
     Route: 048
     Dates: start: 20140306, end: 20140312
  7. PREDNISONE [Concomitant]
     Indication: ARTHROPATHY
     Route: 048
     Dates: start: 20140313, end: 20140317

REACTIONS (1)
  - Herpes zoster meningitis [Recovered/Resolved]
